FAERS Safety Report 24185485 (Version 1)
Quarter: 2024Q3

REPORT INFORMATION
  Report Type: Spontaneous
  Country: CN (occurrence: None)
  Receive Date: 20240807
  Receipt Date: 20240807
  Transmission Date: 20241017
  Serious: Yes (Other)
  Sender: ASTRAZENECA
  Company Number: 2024A175281

PATIENT
  Age: 28056 Day
  Sex: Female
  Weight: 65 kg

DRUGS (3)
  1. OSIMERTINIB MESYLATE [Suspect]
     Active Substance: OSIMERTINIB MESYLATE
     Indication: Symptomatic treatment
     Route: 048
     Dates: start: 20240101, end: 20240606
  2. PEMETREXED DISODIUM [Suspect]
     Active Substance: PEMETREXED DISODIUM
     Indication: Symptomatic treatment
     Dosage: 0.7GR DAILY
     Route: 058
     Dates: start: 20240523, end: 20240523
  3. BEVACIZUMAB [Suspect]
     Active Substance: BEVACIZUMAB
     Indication: Symptomatic treatment
     Route: 058
     Dates: start: 20240524, end: 20240524

REACTIONS (1)
  - Myelosuppression [Recovering/Resolving]

NARRATIVE: CASE EVENT DATE: 20240530
